FAERS Safety Report 6730485-7 (Version None)
Quarter: 2010Q2

REPORT INFORMATION
  Report Type: 
  Country: None (occurrence: None)
  Receive Date: 20100518
  Receipt Date: 20100505
  Transmission Date: 20101027
  Serious: Yes (Hospitalization)
  Sender: FDA-Public Use
  Company Number: DE-ROCHE-703268

PATIENT
  Sex: Female
  Weight: 125 kg

DRUGS (2)
  1. TRASTUZUMAB [Suspect]
     Dosage: SECOND CYCLE
     Route: 042
     Dates: end: 20100414
  2. CAPECITABINE [Suspect]
     Route: 048
     Dates: start: 20100414, end: 20100427

REACTIONS (2)
  - GENERAL PHYSICAL HEALTH DETERIORATION [None]
  - POLYURIA [None]
